FAERS Safety Report 13436357 (Version 1)
Quarter: 2017Q2

REPORT INFORMATION
  Report Type: Spontaneous
  Country: US (occurrence: US)
  Receive Date: 20170412
  Receipt Date: 20170412
  Transmission Date: 20170830
  Serious: No
  Sender: FDA-Public Use
  Company Number: None

PATIENT
  Age: 65 Year
  Sex: Female

DRUGS (1)
  1. OCALIVA [Suspect]
     Active Substance: OBETICHOLIC ACID
     Indication: CHOLANGITIS
     Route: 048
     Dates: start: 20170322, end: 20170411

REACTIONS (3)
  - Pruritus [None]
  - Drug intolerance [None]
  - Sleep disorder [None]

NARRATIVE: CASE EVENT DATE: 201703
